FAERS Safety Report 21386935 (Version 3)
Quarter: 2022Q4

REPORT INFORMATION
  Report Type: Report from Study
  Country: CA (occurrence: CA)
  Receive Date: 20220928
  Receipt Date: 20221019
  Transmission Date: 20230112
  Serious: Yes (Other)
  Sender: FDA-Public Use
  Company Number: CA-BEH-2022147303

PATIENT
  Age: 47 Year
  Sex: Male
  Weight: 110 kg

DRUGS (9)
  1. BERINERT [Suspect]
     Active Substance: HUMAN C1-ESTERASE INHIBITOR
     Indication: Hereditary angioedema with normal C1 esterase inhibitor
     Dosage: 1000 INTERNATIONAL UNIT, PRN
     Route: 042
     Dates: start: 20220612
  2. BERINERT [Suspect]
     Active Substance: HUMAN C1-ESTERASE INHIBITOR
     Indication: Hereditary angioedema with normal C1 esterase inhibitor
     Dosage: 1000 INTERNATIONAL UNIT, PRN
     Route: 042
     Dates: start: 20220612
  3. BERINERT [Suspect]
     Active Substance: HUMAN C1-ESTERASE INHIBITOR
     Indication: Hereditary angioedema with normal C1 esterase inhibitor
     Dosage: 1500 INTERNATIONAL UNIT, PRN
     Route: 042
     Dates: start: 20220612
  4. BERINERT [Suspect]
     Active Substance: HUMAN C1-ESTERASE INHIBITOR
     Dosage: 3000 INTERNATIONAL UNIT, PRN
     Route: 042
     Dates: start: 20220612
  5. NOVORAPID [Concomitant]
     Active Substance: INSULIN ASPART
  6. FIRAZYR [Concomitant]
     Active Substance: ICATIBANT ACETATE
     Indication: Hereditary angioedema with normal C1 esterase inhibitor
  7. PANTOPRAZOLE [Concomitant]
     Active Substance: PANTOPRAZOLE
  8. LANADELUMAB [Concomitant]
     Active Substance: LANADELUMAB
     Indication: Hereditary angioedema with normal C1 esterase inhibitor
     Dosage: INJECTIONS
  9. LANADELUMAB [Concomitant]
     Active Substance: LANADELUMAB
     Indication: Prophylaxis

REACTIONS (12)
  - COVID-19 [Unknown]
  - Myalgia [Unknown]
  - Headache [Unknown]
  - Oropharyngeal pain [Unknown]
  - No adverse event [Unknown]
  - Off label use [Unknown]
  - Device issue [Unknown]
  - Product preparation issue [Unknown]
  - Dermatitis contact [Unknown]
  - Device related infection [Unknown]
  - Drug ineffective for unapproved indication [Unknown]
  - Poor venous access [Unknown]

NARRATIVE: CASE EVENT DATE: 20220701
